FAERS Safety Report 15825338 (Version 2)
Quarter: 2019Q2

REPORT INFORMATION
  Report Type: Spontaneous
  Country: TR (occurrence: TR)
  Receive Date: 20190115
  Receipt Date: 20190403
  Transmission Date: 20190711
  Serious: Yes (Other)
  Sender: FDA-Public Use
  Company Number: TR-BAYER-2019-006824

PATIENT
  Age: 15 Year
  Sex: Male

DRUGS (5)
  1. ASPIRIN 500 MG [Suspect]
     Active Substance: ASPIRIN
     Indication: PROPHYLAXIS
     Dosage: 500 MG, QD
     Dates: start: 1968
  2. TARDEN [Concomitant]
     Indication: TENSION
     Dosage: UNK
  3. BELOC [METOPROLOL SUCCINATE] [Concomitant]
     Active Substance: METOPROLOL SUCCINATE
     Indication: CARDIAC DISORDER
     Dosage: UNK
  4. GLIFIX [Concomitant]
     Indication: DIABETES MELLITUS
     Dosage: UNK
  5. APIKOBAL [Concomitant]
     Active Substance: CYANOCOBALAMIN\PYRIDOXINE HYDROCHLORIDE\THIAMINE
     Indication: SUPPLEMENTATION THERAPY
     Dosage: UNK

REACTIONS (9)
  - Drug dependence [None]
  - Product use in unapproved indication [None]
  - Incorrect product administration duration [None]
  - Cardiac disorder [None]
  - Product taste abnormal [None]
  - Therapeutic product effect decreased [None]
  - Wrong technique in product usage process [None]
  - Diabetes mellitus [None]
  - Intentional product misuse [None]

NARRATIVE: CASE EVENT DATE: 2016
